FAERS Safety Report 6783124-3 (Version None)
Quarter: 2010Q2

REPORT INFORMATION
  Report Type: 
  Country: None (occurrence: None)
  Receive Date: 20100618
  Receipt Date: 20100603
  Transmission Date: 20101027
  Serious: Yes (Death)
  Sender: FDA-Public Use
  Company Number: A-NJ2010-36174

PATIENT
  Age: 94 Year
  Sex: Female

DRUGS (1)
  1. TRACLEER [Suspect]
     Indication: PULMONARY ARTERIAL HYPERTENSION
     Dosage: 125 MG, BID, ORAL
     Route: 048
     Dates: end: 20100411

REACTIONS (3)
  - CARDIAC ARREST [None]
  - LOBAR PNEUMONIA [None]
  - OFF LABEL USE [None]
